FAERS Safety Report 4719267-5 (Version None)
Quarter: 2005Q3

REPORT INFORMATION
  Report Type: 
  Country: None (occurrence: None)
  Receive Date: 20050721
  Receipt Date: 20050616
  Transmission Date: 20060218
  Serious: No
  Sender: FDA-Public Use
  Company Number: US-GLAXOSMITHKLINE-A0562984A

PATIENT
  Age: 64 Year

DRUGS (7)
  1. LEXIVA [Suspect]
     Indication: HIV INFECTION
     Dosage: 700MG TWICE PER DAY
     Route: 048
  2. RITONAVIR [Concomitant]
  3. STAVUDINE [Concomitant]
  4. TENOFOVIR [Concomitant]
  5. BLOOD PRESSURE MEDICATION [Concomitant]
  6. ASPIRIN [Concomitant]
  7. GLIPIZIDE [Concomitant]

REACTIONS (1)
  - DIZZINESS [None]
